FAERS Safety Report 5332619-8 (Version None)
Quarter: 2007Q2

REPORT INFORMATION
  Report Type: 
  Country: None (occurrence: None)
  Receive Date: 20070523
  Receipt Date: 20070515
  Transmission Date: 20071010
  Serious: Yes (Other)
  Sender: FDA-Public Use
  Company Number: US-PFIZER INC-2006011649

PATIENT
  Sex: Male
  Weight: 97.1 kg

DRUGS (21)
  1. NEURONTIN [Suspect]
     Indication: PAIN
     Route: 048
     Dates: start: 20010517, end: 20010101
  2. DARVOCET [Suspect]
     Indication: BACK PAIN
     Dosage: TEXT:100/650-FREQ:UNKNOWN
     Route: 065
  3. HYDROCODONE BITARTRATE [Suspect]
     Dosage: TEXT:UNKNOWN-FREQ:UNKNOWN
     Route: 065
  4. CARDIAC THERAPY [Concomitant]
     Route: 065
  5. LIPITOR [Concomitant]
     Route: 065
  6. LANOXIN [Concomitant]
     Route: 065
  7. DIAZEPAM [Concomitant]
     Route: 065
  8. METOPROLOL SUCCINATE [Concomitant]
     Route: 065
  9. HYDROCODONE BITARTRATE + ACETAMINOPHEN [Concomitant]
     Route: 065
  10. PLAVIX [Concomitant]
     Route: 065
  11. LASIX [Concomitant]
     Route: 065
  12. VALIUM [Concomitant]
     Route: 065
  13. CALCIUM CHLORIDE [Concomitant]
     Route: 065
  14. ECOTRIN [Concomitant]
     Route: 065
  15. ROBITUSSIN-PE [Concomitant]
     Route: 065
  16. ANEXSIA [Concomitant]
     Route: 065
  17. VITAMIN E [Concomitant]
     Route: 065
  18. AMILORIDE HYDROCHLORIDE [Concomitant]
     Route: 065
  19. AFRIN NOSE DROPS [Concomitant]
     Route: 065
  20. PRENATAL VITAMINS [Concomitant]
     Route: 065
  21. ALL OTHER THERAPEUTIC PRODUCTS [Concomitant]
     Route: 065

REACTIONS (30)
  - ADVERSE EVENT [None]
  - BLINDNESS [None]
  - CATARACT [None]
  - DEPRESSION [None]
  - DIZZINESS [None]
  - DRUG HYPERSENSITIVITY [None]
  - DYSPHAGIA [None]
  - EYE MOVEMENT DISORDER [None]
  - FALL [None]
  - FOOT DEFORMITY [None]
  - GAIT DISTURBANCE [None]
  - HEARING IMPAIRED [None]
  - HEPATOCELLULAR DAMAGE [None]
  - HYPERTENSION [None]
  - HYPOAESTHESIA [None]
  - INVESTIGATION ABNORMAL [None]
  - MACULAR DEGENERATION [None]
  - NEUROPATHY [None]
  - PAIN [None]
  - PERIPHERAL MOTOR NEUROPATHY [None]
  - PERIPHERAL SENSORY NEUROPATHY [None]
  - RENAL DISORDER [None]
  - SENSORY DISTURBANCE [None]
  - SKIN ULCER [None]
  - SOMNOLENCE [None]
  - SPEECH DISORDER [None]
  - SPINAL LAMINECTOMY [None]
  - VASOCONSTRICTION [None]
  - VISUAL DISTURBANCE [None]
  - WALKING AID USER [None]
